FAERS Safety Report 8888201 (Version 2)
Quarter: 2013Q1

REPORT INFORMATION
  Report Type: Spontaneous
  Country: IT (occurrence: IT)
  Receive Date: 20121106
  Receipt Date: 20130121
  Transmission Date: 20140127
  Serious: Yes (Hospitalization)
  Sender: FDA-Public Use
  Company Number: IT-NOVOPROD-363051

PATIENT
  Age: 60 Year
  Sex: Female

DRUGS (4)
  1. VICTOZA [Suspect]
     Indication: TYPE 2 DIABETES MELLITUS
     Dosage: 1.2 MG, QD
     Route: 058
     Dates: start: 20110124, end: 20120926
  2. GLUCOPHAGE [Concomitant]
     Dates: start: 20080922
  3. PROVISACOR [Concomitant]
     Dosage: 10 MG, QD
     Dates: start: 20120202
  4. LODOZ [Concomitant]
     Dosage: 6.25 MG, QD
     Dates: start: 20120202

REACTIONS (2)
  - Pancreatic enzymes increased [Recovered/Resolved]
  - Abdominal pain [Recovered/Resolved]
